FAERS Safety Report 6982518-0 (Version None)
Quarter: 2010Q3

REPORT INFORMATION
  Report Type: 
  Country: None (occurrence: None)
  Receive Date: 20100914
  Receipt Date: 20100127
  Transmission Date: 20110219
  Serious: No
  Sender: FDA-Public Use
  Company Number: US-PFIZER INC-2010011726

PATIENT
  Sex: Female

DRUGS (1)
  1. LYRICA [Suspect]
     Indication: HERPES ZOSTER
     Dosage: 50 MG, 2X/DAY
     Route: 048
     Dates: start: 20100121

REACTIONS (4)
  - BURNING SENSATION [None]
  - DIZZINESS [None]
  - ERYTHEMA [None]
  - SWELLING FACE [None]
